FAERS Safety Report 12599870 (Version 1)
Quarter: 2016Q3

REPORT INFORMATION
  Report Type: Spontaneous
  Country: JP (occurrence: JP)
  Receive Date: 20160727
  Receipt Date: 20160727
  Transmission Date: 20161109
  Serious: Yes (Death)
  Sender: FDA-Public Use
  Company Number: JP-PFIZER INC-2016352802

PATIENT
  Age: 8 Decade
  Sex: Male

DRUGS (6)
  1. TRAMAL OD [Suspect]
     Active Substance: TRAMADOL
     Indication: PAIN
     Dosage: 50 MG, DAILY
     Route: 048
  2. OXYCODON [Concomitant]
     Active Substance: OXYCODONE
     Route: 048
  3. TRAMAL OD [Suspect]
     Active Substance: TRAMADOL
     Indication: PALLIATIVE CARE
     Dosage: 25 MG, 1X/DAY
     Route: 048
  4. ZOLEDRONIC ACID [Concomitant]
     Active Substance: ZOLEDRONIC ACID
     Dosage: UNK
     Route: 041
  5. LYRICA [Suspect]
     Active Substance: PREGABALIN
     Dosage: UNK
     Route: 048
  6. SORAFENIB [Concomitant]
     Active Substance: SORAFENIB
     Indication: HEPATOCELLULAR CARCINOMA
     Dosage: UNK

REACTIONS (1)
  - Death [Fatal]
